FAERS Safety Report 10183088 (Version 1)
Quarter: 2014Q2

REPORT INFORMATION
  Report Type: Spontaneous
  Country: IN (occurrence: IN)
  Receive Date: 20140520
  Receipt Date: 20140520
  Transmission Date: 20141212
  Serious: Yes (Hospitalization)
  Sender: FDA-Public Use
  Company Number: IN-SUN PHARMACEUTICAL INDUSTRIES LTD-2014SUN01068

PATIENT
  Age: 60 Year
  Sex: Female

DRUGS (2)
  1. VALPROIC ACID SYRUP 250 MG/5 ML [Suspect]
     Indication: PSYCHOTIC DISORDER
     Dosage: 500 MG/DAY
     Route: 065
  2. OLANZAPINE 10 MG TABLETS [Suspect]
     Indication: PSYCHOTIC DISORDER
     Dosage: 10 MG, UNK
     Route: 065

REACTIONS (3)
  - Neuroleptic malignant syndrome [Recovered/Resolved]
  - Toxicity to various agents [Recovered/Resolved]
  - Generalised tonic-clonic seizure [None]
